FAERS Safety Report 12970446 (Version 2)
Quarter: 2017Q2

REPORT INFORMATION
  Report Type: Spontaneous
  Country: IT (occurrence: IT)
  Receive Date: 20161123
  Receipt Date: 20170412
  Transmission Date: 20170830
  Serious: Yes (Life-Threatening)
  Sender: FDA-Public Use
  Company Number: IT-PFIZER INC-2016541877

PATIENT
  Age: 81 Year
  Sex: Male

DRUGS (1)
  1. CIPROFLOXACIN. [Suspect]
     Active Substance: CIPROFLOXACIN
     Indication: RESPIRATORY TRACT INFECTION
     Dosage: 1000 MG, DAILY
     Route: 048
     Dates: start: 20161018, end: 20161019

REACTIONS (1)
  - Palatal oedema [Recovered/Resolved]

NARRATIVE: CASE EVENT DATE: 20161019
